FAERS Safety Report 10451809 (Version 1)
Quarter: 2014Q3

REPORT INFORMATION
  Report Type: Spontaneous
  Country: CA (occurrence: CA)
  Receive Date: 20140915
  Receipt Date: 20140915
  Transmission Date: 20150326
  Serious: Yes (Disabling, Other)
  Sender: FDA-Public Use
  Company Number: CA-PFIZER INC-2014248518

PATIENT
  Age: 88 Year
  Sex: Female
  Weight: 45 kg

DRUGS (3)
  1. LYRICA [Suspect]
     Active Substance: PREGABALIN
     Dosage: UNK
  2. LYRICA [Suspect]
     Active Substance: PREGABALIN
     Dosage: 50 MG, 2X/DAY
  3. TYLENOL [Concomitant]
     Active Substance: ACETAMINOPHEN
     Dosage: UNK

REACTIONS (13)
  - Blood pressure systolic increased [Unknown]
  - Local swelling [Unknown]
  - Angiopathy [Unknown]
  - Fear of death [Unknown]
  - Sensory loss [Unknown]
  - Asthenia [Unknown]
  - Flushing [Unknown]
  - Micturition urgency [Unknown]
  - Tinnitus [Unknown]
  - Dysuria [Unknown]
  - Headache [Unknown]
  - Pain [Unknown]
  - Vertigo [Unknown]
